FAERS Safety Report 12952448 (Version 1)
Quarter: 2016Q4

REPORT INFORMATION
  Report Type: Spontaneous
  Country: US (occurrence: US)
  Receive Date: 20161117
  Receipt Date: 20161117
  Transmission Date: 20170207
  Serious: Yes (Hospitalization)
  Sender: FDA-Public Use
  Company Number: US-NOVOPROD-500006

PATIENT
  Age: 26 Year
  Sex: Male
  Weight: 61.22 kg

DRUGS (11)
  1. NOVOLOG [Suspect]
     Active Substance: INSULIN ASPART
     Dosage: 50 UNITS FOR EVERY 50MG/DL OVER A BLOOD GLUCOSE OF 150MG/DL BEFORE MEALS
     Route: 058
     Dates: start: 2016
  2. SIMVASTATIN. [Concomitant]
     Active Substance: SIMVASTATIN
     Indication: DYSLIPIDAEMIA
  3. TOUJEO [Concomitant]
     Active Substance: INSULIN GLARGINE
     Indication: TYPE 1 DIABETES MELLITUS
     Dosage: 20 U, QD
     Dates: start: 20160505, end: 2016
  4. TOUJEO [Concomitant]
     Active Substance: INSULIN GLARGINE
     Dosage: INCREMENTALLY INCREASED DOSE
     Dates: start: 2016, end: 2016
  5. LISINOPRIL. [Concomitant]
     Active Substance: LISINOPRIL
     Indication: PROPHYLAXIS
     Dosage: 5 MG, QD
     Dates: start: 20160505
  6. LISINOPRIL. [Concomitant]
     Active Substance: LISINOPRIL
     Indication: RENAL DISORDER
  7. SIMVASTATIN. [Concomitant]
     Active Substance: SIMVASTATIN
     Indication: CARDIOVASCULAR EVENT PROPHYLAXIS
     Dosage: 20 MG, QD AT NIGHT
  8. TOUJEO [Concomitant]
     Active Substance: INSULIN GLARGINE
     Dosage: 44 U, QD
     Dates: start: 2016
  9. LYRICA [Concomitant]
     Active Substance: PREGABALIN
     Indication: DIABETIC NEUROPATHY
     Dosage: 75 MG, BID
  10. NOVOLOG [Suspect]
     Active Substance: INSULIN ASPART
     Indication: TYPE 1 DIABETES MELLITUS
     Dosage: SLIDING SCALE: 2 UNITS FOR EVERY 50MG/DL GREATER THAN 150MG/DL 3 TIMES A DAY BEFORE MEALS
     Route: 058
     Dates: start: 20160512, end: 2016
  11. LYRICA [Concomitant]
     Active Substance: PREGABALIN
     Indication: NEUROPATHY PERIPHERAL

REACTIONS (1)
  - Diabetes mellitus inadequate control [Recovering/Resolving]

NARRATIVE: CASE EVENT DATE: 2016
